FAERS Safety Report 8572916-6 (Version None)
Quarter: 2012Q2

REPORT INFORMATION
  Report Type: 
  Country: None (occurrence: None)
  Receive Date: 20120420
  Receipt Date: 20120420
  Transmission Date: 20120825
  Serious: Yes (Other)
  Sender: FDA-Public Use
  Company Number: ALL1-2011-04160

PATIENT
  Age: 5 Year
  Sex: Male

DRUGS (1)
  1. VYVANSE [Suspect]
     Indication: ATTENTION DEFICIT/HYPERACTIVITY DISORDER
     Dosage: 1X/DAY, QD, ORAL
     Route: 048
     Dates: start: 20111001, end: 20111001

REACTIONS (2)
  - PSYCHOTIC DISORDER [None]
  - OFF LABEL USE [None]
